FAERS Safety Report 5535949-X (Version None)
Quarter: 2007Q4

REPORT INFORMATION
  Report Type: 
  Country: None (occurrence: None)
  Receive Date: 20071206
  Receipt Date: 20070822
  Transmission Date: 20080405
  Serious: Yes (Other)
  Sender: FDA-Public Use
  Company Number: US-AMGEN-STX238032

PATIENT
  Sex: Male

DRUGS (8)
  1. ENBREL [Suspect]
     Indication: PSORIASIS
     Route: 058
     Dates: start: 20040801, end: 20070101
  2. ENBREL [Suspect]
     Indication: PSORIATIC ARTHROPATHY
  3. IBUPROFEN [Concomitant]
  4. DOVONEX [Concomitant]
  5. FLUOCINONIDE [Concomitant]
  6. COAL TAR [Concomitant]
  7. CLOBETASOL PROPIONATE [Concomitant]
  8. TRIAMCINOLONE [Concomitant]

REACTIONS (1)
  - HEPATIC CANCER METASTATIC [None]
